FAERS Safety Report 25198621 (Version 1)
Quarter: 2025Q2

REPORT INFORMATION
  Report Type: Spontaneous
  Country: US (occurrence: US)
  Receive Date: 20250415
  Receipt Date: 20250415
  Transmission Date: 20250717
  Serious: Yes (Life-Threatening, Hospitalization)
  Sender: MYLAN
  Company Number: US-MYLANLABS-2025M1032290

PATIENT
  Age: 17 Year
  Sex: Female

DRUGS (40)
  1. PHENYTOIN [Suspect]
     Active Substance: PHENYTOIN
     Indication: Epilepsia partialis continua
  2. PHENYTOIN [Suspect]
     Active Substance: PHENYTOIN
     Indication: New onset refractory status epilepticus
  3. PHENYTOIN [Suspect]
     Active Substance: PHENYTOIN
     Route: 065
  4. PHENYTOIN [Suspect]
     Active Substance: PHENYTOIN
     Route: 065
  5. PHENYTOIN [Suspect]
     Active Substance: PHENYTOIN
  6. PHENYTOIN [Suspect]
     Active Substance: PHENYTOIN
  7. PHENYTOIN [Suspect]
     Active Substance: PHENYTOIN
     Route: 065
  8. PHENYTOIN [Suspect]
     Active Substance: PHENYTOIN
     Route: 065
  9. LACOSAMIDE [Suspect]
     Active Substance: LACOSAMIDE
     Indication: Epilepsia partialis continua
  10. LACOSAMIDE [Suspect]
     Active Substance: LACOSAMIDE
     Indication: New onset refractory status epilepticus
  11. LACOSAMIDE [Suspect]
     Active Substance: LACOSAMIDE
     Route: 065
  12. LACOSAMIDE [Suspect]
     Active Substance: LACOSAMIDE
     Route: 065
  13. LACOSAMIDE [Suspect]
     Active Substance: LACOSAMIDE
  14. LACOSAMIDE [Suspect]
     Active Substance: LACOSAMIDE
  15. LACOSAMIDE [Suspect]
     Active Substance: LACOSAMIDE
     Route: 065
  16. LACOSAMIDE [Suspect]
     Active Substance: LACOSAMIDE
     Route: 065
  17. LEVETIRACETAM [Suspect]
     Active Substance: LEVETIRACETAM
     Indication: Epilepsia partialis continua
  18. LEVETIRACETAM [Suspect]
     Active Substance: LEVETIRACETAM
     Indication: New onset refractory status epilepticus
  19. LEVETIRACETAM [Suspect]
     Active Substance: LEVETIRACETAM
     Route: 065
  20. LEVETIRACETAM [Suspect]
     Active Substance: LEVETIRACETAM
     Route: 065
  21. LEVETIRACETAM [Suspect]
     Active Substance: LEVETIRACETAM
  22. LEVETIRACETAM [Suspect]
     Active Substance: LEVETIRACETAM
  23. LEVETIRACETAM [Suspect]
     Active Substance: LEVETIRACETAM
     Route: 065
  24. LEVETIRACETAM [Suspect]
     Active Substance: LEVETIRACETAM
     Route: 065
  25. TOPIRAMATE [Suspect]
     Active Substance: TOPIRAMATE
     Indication: Epilepsia partialis continua
  26. TOPIRAMATE [Suspect]
     Active Substance: TOPIRAMATE
     Indication: New onset refractory status epilepticus
  27. TOPIRAMATE [Suspect]
     Active Substance: TOPIRAMATE
     Route: 065
  28. TOPIRAMATE [Suspect]
     Active Substance: TOPIRAMATE
     Route: 065
  29. TOPIRAMATE [Suspect]
     Active Substance: TOPIRAMATE
  30. TOPIRAMATE [Suspect]
     Active Substance: TOPIRAMATE
  31. TOPIRAMATE [Suspect]
     Active Substance: TOPIRAMATE
     Route: 065
  32. TOPIRAMATE [Suspect]
     Active Substance: TOPIRAMATE
     Route: 065
  33. CENOBAMATE [Suspect]
     Active Substance: CENOBAMATE
     Indication: Epilepsia partialis continua
  34. CENOBAMATE [Suspect]
     Active Substance: CENOBAMATE
     Indication: New onset refractory status epilepticus
  35. CENOBAMATE [Suspect]
     Active Substance: CENOBAMATE
     Route: 065
  36. CENOBAMATE [Suspect]
     Active Substance: CENOBAMATE
     Route: 065
  37. CENOBAMATE [Suspect]
     Active Substance: CENOBAMATE
  38. CENOBAMATE [Suspect]
     Active Substance: CENOBAMATE
  39. CENOBAMATE [Suspect]
     Active Substance: CENOBAMATE
     Route: 065
  40. CENOBAMATE [Suspect]
     Active Substance: CENOBAMATE
     Route: 065

REACTIONS (1)
  - Drug ineffective [Unknown]
